FAERS Safety Report 10249274 (Version 1)
Quarter: 2014Q2

REPORT INFORMATION
  Report Type: Spontaneous
  Country: US (occurrence: None)
  Receive Date: 20140618
  Receipt Date: 20140618
  Transmission Date: 20141212
  Serious: Yes (Other)
  Sender: FDA-Public Use
  Company Number: None

PATIENT
  Age: 65 Year
  Sex: Male
  Weight: 99 kg

DRUGS (5)
  1. ZYTIGA 250MG [Suspect]
     Indication: PROSTATE CANCER METASTATIC
     Dosage: 4 PILLS, QD, ORAL
     Route: 048
     Dates: start: 20140403, end: 20140425
  2. CRESTOR? [Concomitant]
  3. LISINOPRIL [Concomitant]
  4. METFORMIN [Concomitant]
  5. ASPIRIN [Concomitant]

REACTIONS (1)
  - Renal tubular necrosis [None]
